FAERS Safety Report 6318734-0 (Version None)
Quarter: 2009Q3

REPORT INFORMATION
  Report Type: 
  Country: None (occurrence: None)
  Receive Date: 20090819
  Receipt Date: 20090814
  Transmission Date: 20100115
  Serious: Yes (Other)
  Sender: FDA-Public Use
  Company Number: GB-1170582

PATIENT
  Age: 51 Year
  Sex: Female

DRUGS (2)
  1. CIPROFLOXACIN [Suspect]
  2. LYRICA [Suspect]
     Dosage: 25 MG BID

REACTIONS (2)
  - DRUG INTERACTION [None]
  - EPILEPSY [None]
